FAERS Safety Report 5614058-5 (Version None)
Quarter: 2008Q1

REPORT INFORMATION
  Report Type: 
  Country: None (occurrence: None)
  Receive Date: 20080205
  Receipt Date: 20080123
  Transmission Date: 20080703
  Serious: Yes (Hospitalization)
  Sender: FDA-Public Use
  Company Number: CH-ROCHE-541639

PATIENT
  Age: 73 Year
  Sex: Female
  Weight: 88 kg

DRUGS (13)
  1. METHOXY POLYETHYLENE GLYCOL-EPOETIN BETA [Suspect]
     Route: 042
     Dates: start: 20071206
  2. ASPIRIN [Concomitant]
     Dosage: DOSAGE: 1-0-0.
     Dates: start: 20060615
  3. ACETALGIN [Concomitant]
     Dates: start: 20060829
  4. RENAGEL [Concomitant]
     Dosage: DOSAGE: 3-3-3.
     Dates: start: 20061010
  5. TORSEMIDE [Concomitant]
     Dosage: DOSAGE: 1-0-0.
     Dates: start: 20061204
  6. ZESTRIL [Concomitant]
     Dosage: DOSAGE: 0-0-1.
     Dates: start: 20061204
  7. VITARUBIN [Concomitant]
     Dosage: DRUG REPORTED AS VITARUBIN SUPERCONC.
     Dates: start: 20070116
  8. DIALVIT [Concomitant]
     Dosage: DRUG REPORTED AS DIALVIT KPS. DOSAGE: 0-0-1.
     Dates: start: 20070227
  9. AMLODIPINE [Concomitant]
     Dosage: DOSAGE: 0-0-1.
     Dates: start: 20070308
  10. MAGNESIUM [Concomitant]
     Dosage: DOSAGE: 1-0-0.
     Dates: start: 20070619
  11. PRAVASTATIN [Concomitant]
     Dosage: DOSAGE: 0-0-1.
     Dates: start: 20070423
  12. BISOPROLOL FUMARATE [Concomitant]
     Dosage: DOSAGE: 1-0-0.
     Dates: start: 20070717
  13. VENOFER [Concomitant]
     Route: 042
     Dates: start: 20071211

REACTIONS (1)
  - UROSEPSIS [None]
